FAERS Safety Report 10354746 (Version 1)
Quarter: 2014Q3

REPORT INFORMATION
  Report Type: Spontaneous
  Country: US (occurrence: None)
  Receive Date: 20140729
  Receipt Date: 20140729
  Transmission Date: 20150326
  Serious: Yes (Other)
  Sender: FDA-Public Use
  Company Number: None

PATIENT
  Age: 51 Year
  Sex: Male
  Weight: 74.84 kg

DRUGS (1)
  1. CIALIS [Suspect]
     Active Substance: TADALAFIL
     Indication: ERECTILE DYSFUNCTION
     Dosage: 1 AS NEEDED TAKEN BY MOUTH
     Route: 048

REACTIONS (9)
  - Loss of consciousness [None]
  - Feeling hot [None]
  - Erection increased [None]
  - Heart rate increased [None]
  - Hypopnoea [None]
  - Vision blurred [None]
  - Exophthalmos [None]
  - Unresponsive to stimuli [None]
  - Memory impairment [None]

NARRATIVE: CASE EVENT DATE: 20101018
